FAERS Safety Report 10654517 (Version 1)
Quarter: 2014Q4

REPORT INFORMATION
  Report Type: Spontaneous
  Country: IT (occurrence: IT)
  Receive Date: 20141216
  Receipt Date: 20141216
  Transmission Date: 20150529
  Serious: Yes (Other)
  Sender: FDA-Public Use
  Company Number: IT-MYLANLABS-2014M1014182

PATIENT

DRUGS (4)
  1. ETOPOSIDE. [Suspect]
     Active Substance: ETOPOSIDE
     Indication: OFF LABEL USE
  2. ETOPOSIDE. [Suspect]
     Active Substance: ETOPOSIDE
     Indication: NEUROBLASTOMA
     Dosage: 200 MG/M2 DAY 1-2-3
     Route: 065
  3. CYCLOPHOSPHAMIDE. [Suspect]
     Active Substance: CYCLOPHOSPHAMIDE
     Indication: NEUROBLASTOMA
     Dosage: 60 MG/KG DAY 4-5
     Route: 065
  4. THIOTEPA. [Suspect]
     Active Substance: THIOTEPA
     Indication: NEUROBLASTOMA
     Dosage: 250 MG/M2 DAY 1-2-3
     Route: 065

REACTIONS (3)
  - Focal nodular hyperplasia [Recovering/Resolving]
  - Nodular regenerative hyperplasia [Recovering/Resolving]
  - Hepatotoxicity [Recovering/Resolving]
